FAERS Safety Report 4402002-8 (Version None)
Quarter: 2004Q3

REPORT INFORMATION
  Report Type: 
  Country: None (occurrence: None)
  Receive Date: 20040714
  Receipt Date: 20040629
  Transmission Date: 20050211
  Serious: Yes (Hospitalization)
  Sender: FDA-Public Use
  Company Number: US-JNJFOC-20040608179

PATIENT
  Age: 64 Year
  Sex: Male

DRUGS (1)
  1. VIADUR [Suspect]
     Indication: PROSTATE CANCER
     Dosage: 120 UG, 1 IN 1 DAY, SUBCUTANEOUS
     Route: 058
     Dates: start: 20031223

REACTIONS (4)
  - BIPOLAR I DISORDER [None]
  - DELUSION [None]
  - IMPRISONMENT [None]
  - INSOMNIA [None]
